FAERS Safety Report 10746213 (Version 1)
Quarter: 2015Q1

REPORT INFORMATION
  Report Type: Report from Study
  Country: JP (occurrence: JP)
  Receive Date: 20150128
  Receipt Date: 20150128
  Transmission Date: 20150721
  Serious: Yes (Hospitalization, Other)
  Sender: FDA-Public Use
  Company Number: JP-GILEAD-2014-0125374

PATIENT
  Age: 44 Year
  Sex: Male

DRUGS (14)
  1. FLUCONAZOLE. [Concomitant]
     Active Substance: FLUCONAZOLE
     Indication: ORAL CANDIDIASIS
     Dosage: 100 MG, QD
     Route: 065
     Dates: start: 20131122, end: 20131230
  2. CLARITHROMYCIN. [Concomitant]
     Active Substance: CLARITHROMYCIN
     Indication: ATYPICAL MYCOBACTERIAL INFECTION
     Dosage: 400 MG, BID
     Route: 065
     Dates: start: 20131030, end: 20131224
  3. EMTRICITABINE/TENOFOVIR DISOPROXIL FUMARATE [Suspect]
     Active Substance: EMTRICITABINE\TENOFOVIR DISOPROXIL
     Indication: HIV INFECTION
     Dosage: 1 DF, QD
     Route: 048
     Dates: start: 20131021
  4. PREZISTANAIVE [Concomitant]
     Active Substance: DARUNAVIR
     Indication: HIV INFECTION
     Dosage: 800 MG, QD
     Route: 048
     Dates: start: 20131021
  5. PYRINAZIN [Concomitant]
     Active Substance: ACETAMINOPHEN
     Indication: MOUTH ULCERATION
     Route: 048
     Dates: start: 20131007, end: 20131208
  6. FAMOTIDINE. [Concomitant]
     Active Substance: FAMOTIDINE
     Indication: MOUTH ULCERATION
     Dosage: 20 MG, BID
     Route: 065
     Dates: start: 20131021, end: 20131207
  7. PREDONINE [Concomitant]
     Active Substance: PREDNISOLONE\PREDNISOLONE ACETATE\PREDNISOLONE SODIUM SUCCINATE
     Dosage: 5 MG, BID
     Route: 065
     Dates: start: 20131115, end: 20131206
  8. EBUTOL [Concomitant]
     Active Substance: ETHAMBUTOL HYDROCHLORIDE
     Indication: ATYPICAL MYCOBACTERIAL INFECTION
     Dosage: 750 MG, QD
     Route: 048
     Dates: start: 20131030, end: 20131224
  9. PREDONINE [Concomitant]
     Active Substance: PREDNISOLONE\PREDNISOLONE ACETATE\PREDNISOLONE SODIUM SUCCINATE
     Indication: MOUTH ULCERATION
     Dosage: 10 MG, BID
     Route: 065
     Dates: start: 20131007, end: 20131025
  10. NORVIR [Concomitant]
     Active Substance: RITONAVIR
     Indication: HIV INFECTION
     Dosage: 100 MG, QD
     Route: 048
     Dates: start: 20131021
  11. SULFAMETHOXAZOLE AND TRIMETHOPRIM [Concomitant]
     Active Substance: SULFAMETHOXAZOLE\TRIMETHOPRIM
     Indication: PNEUMOCYSTIS JIROVECII PNEUMONIA
     Route: 048
     Dates: start: 20130920
  12. ALLOID G [Concomitant]
     Active Substance: SODIUM ALGINATE
     Indication: MOUTH ULCERATION
     Dosage: 20 ML, TID
     Route: 048
     Dates: start: 20131115, end: 20131206
  13. LOXOPROFEN [Concomitant]
     Active Substance: LOXOPROFEN
     Indication: MOUTH ULCERATION
     Route: 048
     Dates: start: 20131122, end: 20131208
  14. MUCOSTA [Concomitant]
     Active Substance: REBAMIPIDE
     Indication: MOUTH ULCERATION
     Route: 048
     Dates: start: 20131122, end: 20131208

REACTIONS (4)
  - Constipation [Not Recovered/Not Resolved]
  - Oesophageal ulcer [Recovering/Resolving]
  - Cytomegalovirus infection [Recovering/Resolving]
  - Ileal ulcer [Recovering/Resolving]

NARRATIVE: CASE EVENT DATE: 20131027
